FAERS Safety Report 7975417-9 (Version None)
Quarter: 2011Q4

REPORT INFORMATION
  Report Type: 
  Country: None (occurrence: None)
  Receive Date: 20111213
  Receipt Date: 20110927
  Transmission Date: 20120403
  Serious: No
  Sender: FDA-Public Use
  Company Number: US-AMGEN-USASP2011049940

PATIENT
  Age: 38 Year
  Sex: Male

DRUGS (2)
  1. HYDROCODONE [Concomitant]
     Dosage: UNK
  2. ENBREL [Suspect]
     Indication: ANKYLOSING SPONDYLITIS
     Dosage: 50 MG, QWK
     Dates: start: 20110701

REACTIONS (2)
  - INJECTION SITE REACTION [None]
  - NASOPHARYNGITIS [None]
